FAERS Safety Report 12695892 (Version 1)
Quarter: 2016Q3

REPORT INFORMATION
  Report Type: Spontaneous
  Country: US (occurrence: US)
  Receive Date: 20160829
  Receipt Date: 20160829
  Transmission Date: 20161109
  Serious: No
  Sender: FDA-Public Use
  Company Number: US-PFIZER INC-2016382070

PATIENT
  Age: 68 Year
  Sex: Female

DRUGS (2)
  1. NITROSTAT [Suspect]
     Active Substance: NITROGLYCERIN
     Indication: CHEST PAIN
     Dosage: UNK, AS NEEDED
  2. TIKOSYN [Suspect]
     Active Substance: DOFETILIDE
     Dosage: 250 MCG, AS NEEDED (250MCG BID)

REACTIONS (2)
  - Localised infection [Unknown]
  - Snake bite [Unknown]
